FAERS Safety Report 12355457 (Version 2)
Quarter: 2016Q2

REPORT INFORMATION
  Report Type: Spontaneous
  Country: US (occurrence: US)
  Receive Date: 20160511
  Receipt Date: 20160623
  Transmission Date: 20160815
  Serious: No
  Sender: FDA-Public Use
  Company Number: US-LUNDBECK-DKLU2012778

PATIENT
  Age: 68 Year
  Sex: Male

DRUGS (3)
  1. NORTHERA [Suspect]
     Active Substance: DROXIDOPA
     Dosage: ON TITRATION B SCHEDULE
     Route: 065
  2. NORTHERA [Suspect]
     Active Substance: DROXIDOPA
     Indication: PRODUCT USED FOR UNKNOWN INDICATION
     Dosage: ON TITRATION B SCHEDULE
     Route: 065
     Dates: start: 20160412
  3. NORTHERA [Suspect]
     Active Substance: DROXIDOPA
     Dosage: ON TITRATION B SCHEDULE
     Route: 065
     Dates: end: 20160509

REACTIONS (5)
  - Balance disorder [Unknown]
  - Blood pressure systolic increased [Unknown]
  - Asthenia [Unknown]
  - Fatigue [Not Recovered/Not Resolved]
  - Drug ineffective [Unknown]

NARRATIVE: CASE EVENT DATE: 201604
